FAERS Safety Report 24381076 (Version 1)
Quarter: 2024Q3

REPORT INFORMATION
  Report Type: Report from Study
  Country: MX (occurrence: MX)
  Receive Date: 20240930
  Receipt Date: 20240930
  Transmission Date: 20241017
  Serious: Yes (Disabling)
  Sender: ABBVIE
  Company Number: MX-ABBVIE-5942028

PATIENT
  Sex: Male
  Weight: 70 kg

DRUGS (1)
  1. VENCLEXTA [Suspect]
     Active Substance: VENETOCLAX
     Indication: Chronic lymphocytic leukaemia
     Dosage: END DATE: 2024, FORM STRENGTH: 100 MG
     Route: 048
     Dates: start: 20240810

REACTIONS (4)
  - Mobility decreased [Unknown]
  - Discomfort [Unknown]
  - Dysuria [Unknown]
  - Fatigue [Unknown]

NARRATIVE: CASE EVENT DATE: 20240101
